FAERS Safety Report 8352230-4 (Version None)
Quarter: 2012Q2

REPORT INFORMATION
  Report Type: 
  Country: None (occurrence: None)
  Receive Date: 20120509
  Receipt Date: 20120425
  Transmission Date: 20120825
  Serious: Yes (Hospitalization, Other)
  Sender: FDA-Public Use
  Company Number: NSR_00542_2012

PATIENT
  Age: 52 Year
  Sex: Male

DRUGS (2)
  1. METOCLOPRAMIDE [Suspect]
     Indication: NAUSEA
     Dosage: (50 MG, DF INTRAMUSCULAR)
     Route: 030
  2. METOCLOPRAMIDE [Suspect]
     Indication: HICCUPS
     Dosage: (50 MG, DF INTRAMUSCULAR)
     Route: 030

REACTIONS (1)
  - TOXIC EPIDERMAL NECROLYSIS [None]
